FAERS Safety Report 23943960 (Version 1)
Quarter: 2024Q2

REPORT INFORMATION
  Report Type: Spontaneous
  Country: JP (occurrence: JP)
  Receive Date: 20240606
  Receipt Date: 20240606
  Transmission Date: 20240715
  Serious: Yes (Death, Other)
  Sender: FDA-Public Use
  Company Number: JP-BRISTOL-MYERS SQUIBB COMPANY-2024-089755

PATIENT

DRUGS (1)
  1. ABECMA [Suspect]
     Active Substance: IDECABTAGENE VICLEUCEL
     Indication: Product used for unknown indication
     Dosage: DOSE : IN ACCORDANCE WITH RFI;     FREQ : ONE TIME
     Route: 041

REACTIONS (1)
  - Death [Fatal]
